FAERS Safety Report 22523741 (Version 1)
Quarter: 2023Q2

REPORT INFORMATION
  Report Type: Report from Study
  Country: US (occurrence: US)
  Receive Date: 20230606
  Receipt Date: 20230606
  Transmission Date: 20230722
  Serious: Yes (Other)
  Sender: FDA-Public Use
  Company Number: US-UCBSA-2023022185

PATIENT
  Age: 38 Year
  Sex: Female
  Weight: 72.5 kg

DRUGS (1)
  1. CERTOLIZUMAB PEGOL [Suspect]
     Active Substance: CERTOLIZUMAB PEGOL
     Indication: Crohn^s disease
     Dosage: 400 MG (2X200 MG/ML) AT WEEKS 0, 2,4
     Dates: start: 20230426, end: 20230510

REACTIONS (12)
  - Nausea [Recovered/Resolved]
  - Pain [Recovered/Resolved]
  - Musculoskeletal stiffness [Recovered/Resolved]
  - Pollakiuria [Not Recovered/Not Resolved]
  - Bladder pain [Not Recovered/Not Resolved]
  - Folliculitis [Not Recovered/Not Resolved]
  - Dehydration [Unknown]
  - Muscle spasms [Unknown]
  - Dizziness [Unknown]
  - Presyncope [Unknown]
  - Specific gravity urine abnormal [Unknown]
  - Adverse event [Unknown]

NARRATIVE: CASE EVENT DATE: 20230426
